FAERS Safety Report 14353882 (Version 1)
Quarter: 2018Q1

REPORT INFORMATION
  Report Type: Spontaneous
  Country: ES (occurrence: ES)
  Receive Date: 20180105
  Receipt Date: 20180105
  Transmission Date: 20180509
  Serious: Yes (Hospitalization, Other)
  Sender: FDA-Public Use
  Company Number: ES-VISTAPHARM, INC.-VER201712-001633

PATIENT
  Age: 36 Year
  Sex: Female
  Weight: 35 kg

DRUGS (5)
  1. MORPHINE [Suspect]
     Active Substance: MORPHINE
     Route: 048
  2. MORPHINE [Suspect]
     Active Substance: MORPHINE
     Route: 042
  3. OXYCODONE/NALOXONE [Concomitant]
     Active Substance: NALOXONE HYDROCHLORIDE\OXYCODONE HYDROCHLORIDE
     Indication: PAIN
  4. MORPHINE [Suspect]
     Active Substance: MORPHINE
     Indication: PAIN
     Route: 058
  5. OXYCODONE/NALOXONE [Concomitant]
     Active Substance: NALOXONE HYDROCHLORIDE\OXYCODONE HYDROCHLORIDE

REACTIONS (6)
  - Diarrhoea [Recovered/Resolved]
  - Withdrawal syndrome [Unknown]
  - Abdominal distension [Recovered/Resolved]
  - Somnolence [Recovered/Resolved]
  - Hyperaesthesia [Recovering/Resolving]
  - Constipation [Recovered/Resolved]
